FAERS Safety Report 12313809 (Version 1)
Quarter: 2016Q2

REPORT INFORMATION
  Report Type: Spontaneous
  Country: US (occurrence: None)
  Receive Date: 20160427
  Receipt Date: 20160427
  Transmission Date: 20160815
  Serious: Yes (Hospitalization)
  Sender: FDA-Public Use
  Company Number: None

PATIENT
  Age: 68 Year
  Sex: Male
  Weight: 85.28 kg

DRUGS (9)
  1. LORAZEPAM. [Concomitant]
     Active Substance: LORAZEPAM
  2. LISINOPRIL. [Concomitant]
     Active Substance: LISINOPRIL
  3. QUETIAPINE FUMARATE. [Concomitant]
     Active Substance: QUETIAPINE FUMARATE
  4. ASPIRIN. [Concomitant]
     Active Substance: ASPIRIN
  5. CLONIDINE HCL [Suspect]
     Active Substance: CLONIDINE HYDROCHLORIDE
     Indication: HYPERTENSION
     Route: 048
     Dates: start: 20160215, end: 20160309
  6. CARVEDILOL. [Concomitant]
     Active Substance: CARVEDILOL
  7. NIFEDIPINE. [Concomitant]
     Active Substance: NIFEDIPINE
  8. ATORVASTATINE CALCIUM [Concomitant]
  9. MIRTAZAPINE. [Concomitant]
     Active Substance: MIRTAZAPINE

REACTIONS (5)
  - Hallucination, visual [None]
  - Insomnia [None]
  - Anxiety [None]
  - Nervousness [None]
  - Depression [None]

NARRATIVE: CASE EVENT DATE: 20160309
